FAERS Safety Report 13461841 (Version 1)
Quarter: 2017Q2

REPORT INFORMATION
  Report Type: Spontaneous
  Country: US (occurrence: US)
  Receive Date: 20170420
  Receipt Date: 20170420
  Transmission Date: 20170830
  Serious: No
  Sender: FDA-Public Use
  Company Number: US-GLAXOSMITHKLINE-US2017054284

PATIENT
  Age: 36 Year
  Sex: Male

DRUGS (3)
  1. ABREVA [Suspect]
     Active Substance: DOCOSANOL
     Indication: APHTHOUS ULCER
     Dosage: UNK
     Dates: start: 201703, end: 201703
  2. ABREVA [Suspect]
     Active Substance: DOCOSANOL
     Dosage: UNK
  3. ABREVA [Suspect]
     Active Substance: DOCOSANOL
     Indication: CHAPPED LIPS
     Dosage: UNK

REACTIONS (4)
  - Lip swelling [Not Recovered/Not Resolved]
  - Hypersensitivity [Unknown]
  - Lip discolouration [Not Recovered/Not Resolved]
  - Product use in unapproved indication [Unknown]

NARRATIVE: CASE EVENT DATE: 201703
